FAERS Safety Report 5512136-2 (Version None)
Quarter: 2007Q4

REPORT INFORMATION
  Report Type: 
  Country: None (occurrence: None)
  Receive Date: 20071112
  Receipt Date: 20071105
  Transmission Date: 20080405
  Serious: Yes (Hospitalization, Other)
  Sender: FDA-Public Use
  Company Number: US-SHR-US-2006-030780

PATIENT
  Age: 58 Year
  Sex: Female
  Weight: 64.4 kg

DRUGS (8)
  1. BETASERON [Suspect]
     Indication: RELAPSING-REMITTING MULTIPLE SCLEROSIS
     Dosage: 8 MIU, EVERY 2D
     Route: 058
     Dates: start: 20060713, end: 20061219
  2. BETASERON [Suspect]
     Dosage: 8 MIU, EVERY 2D
     Route: 058
     Dates: start: 20061223
  3. PROVIGIL [Concomitant]
  4. LIBRIUM [Concomitant]
  5. PROZAC [Concomitant]
  6. ZAROXOLYN [Concomitant]
     Indication: HYPERTENSION
     Dates: end: 20060901
  7. VITAMIN A E D [Concomitant]
     Dosage: UNK, 1X/DAY
  8. VITAMIN B6 - B12 [Concomitant]
     Dosage: UNK, 1X/DAY

REACTIONS (8)
  - BLOOD POTASSIUM DECREASED [None]
  - INJECTION SITE ERYTHEMA [None]
  - MUSCLE SPASMS [None]
  - MYOCARDIAL INFARCTION [None]
  - NAUSEA [None]
  - RASH PAPULAR [None]
  - STRESS [None]
  - WEIGHT DECREASED [None]
